FAERS Safety Report 9028734 (Version 1)
Quarter: 2013Q1

REPORT INFORMATION
  Report Type: Spontaneous
  Country: US (occurrence: US)
  Receive Date: 20130124
  Receipt Date: 20130124
  Transmission Date: 20140127
  Serious: Yes (Other)
  Sender: FDA-Public Use
  Company Number: US-PFIZER INC-2013026965

PATIENT
  Age: 45 Year
  Sex: Female
  Weight: 93 kg

DRUGS (21)
  1. CELEBREX [Suspect]
     Indication: ARTHRALGIA
     Dosage: 200 MG, 2X/DAY
     Route: 048
  2. JANUVIA [Concomitant]
     Dosage: UNK
  3. METFORMIN [Concomitant]
     Dosage: UNK
  4. INVEGA [Concomitant]
     Dosage: UNK
  5. PROZAC [Concomitant]
     Dosage: UNK
  6. LORATADINE [Concomitant]
     Dosage: UNK
  7. AMITRIPTYLINE [Concomitant]
     Dosage: UNK
  8. AMLODIPINE [Concomitant]
     Dosage: UNK
  9. PRAZOSIN [Concomitant]
     Dosage: UNK
  10. SINGULAIR [Concomitant]
     Dosage: UNK
  11. SEROQUEL [Concomitant]
     Dosage: UNK
  12. TRAZODONE [Concomitant]
     Dosage: UNK
  13. OMEPRAZOLE [Concomitant]
     Indication: ULCER
     Dosage: UNK
  14. LOVASTATIN [Concomitant]
     Dosage: UNK
  15. LISINOPRIL [Concomitant]
     Dosage: UNK
  16. PROAIR HFA [Concomitant]
     Dosage: UNK
  17. ASPIRIN [Concomitant]
     Dosage: UNK
  18. FLUTICASONE [Concomitant]
     Dosage: UNK
  19. ADVAIR [Concomitant]
     Dosage: UNK
  20. METHOCARBAMOL [Concomitant]
     Dosage: UNK
  21. HYDROCODONE [Concomitant]
     Dosage: UNK

REACTIONS (2)
  - Spinal disorder [Unknown]
  - Diabetic neuropathy [Unknown]
